FAERS Safety Report 12841143 (Version 1)
Quarter: 2016Q4

REPORT INFORMATION
  Report Type: Spontaneous
  Country: US (occurrence: US)
  Receive Date: 20161012
  Receipt Date: 20161012
  Transmission Date: 20170207
  Serious: Yes (Hospitalization, Other)
  Sender: FDA-Public Use
  Company Number: US-MYLANLABS-2016M1043773

PATIENT

DRUGS (1)
  1. METHOTREXATE. [Suspect]
     Active Substance: METHOTREXATE
     Indication: ACUTE LYMPHOCYTIC LEUKAEMIA
     Dosage: 2 DOSES OF 15MG OF METHOTREXATE PER PROTOCOL
     Route: 037

REACTIONS (8)
  - Aphasia [Unknown]
  - Hyperhidrosis [Unknown]
  - Hemiparesis [Unknown]
  - Facial paralysis [Unknown]
  - Neurotoxicity [Unknown]
  - Asthenia [Unknown]
  - Mental status changes [Unknown]
  - Muscular weakness [Unknown]
